FAERS Safety Report 9358721 (Version 1)
Quarter: 2013Q2

REPORT INFORMATION
  Report Type: Spontaneous
  Country: US (occurrence: US)
  Receive Date: 20130620
  Receipt Date: 20130620
  Transmission Date: 20140414
  Serious: No
  Sender: FDA-Public Use
  Company Number: 2013SP001743

PATIENT
  Sex: Female

DRUGS (1)
  1. ZETONNA [Suspect]
     Indication: PRODUCT USED FOR UNKNOWN INDICATION
     Route: 045
     Dates: end: 20130615

REACTIONS (6)
  - Muscular weakness [Recovered/Resolved]
  - Malaise [Unknown]
  - Chills [Recovered/Resolved]
  - Dizziness [Recovered/Resolved]
  - Headache [Recovered/Resolved]
  - Nasal discomfort [Recovered/Resolved]
